FAERS Safety Report 4307095-4 (Version None)
Quarter: 2004Q1

REPORT INFORMATION
  Report Type: 
  Country: None (occurrence: None)
  Receive Date: 20040225
  Receipt Date: 20040205
  Transmission Date: 20041129
  Serious: Yes (Hospitalization)
  Sender: FDA-Public Use
  Company Number: DE_040212933

PATIENT
  Sex: Female

DRUGS (2)
  1. XIGRIS [Suspect]
     Dates: start: 20040101, end: 20040101
  2. MARCUMAR [Concomitant]

REACTIONS (1)
  - THROMBOCYTOPENIA [None]
